FAERS Safety Report 9524244 (Version 1)
Quarter: 2013Q1

REPORT INFORMATION
  Report Type: Spontaneous
  Country: US (occurrence: None)
  Receive Date: 20130313
  Receipt Date: 20130313
  Transmission Date: 20140127
  Serious: No
  Sender: FDA-Public Use
  Company Number: 1000037005

PATIENT
  Age: 73 Year
  Sex: Female

DRUGS (7)
  1. SAVELLA (MILNACIPRAN HYDROCHLORIDE) (12.5 MILLIGRAM, TABLETS) [Suspect]
     Indication: NEURALGIA
     Dosage: 12.5 MG (12.5 MG, 1 IN 1 D), ORAL
     Route: 048
     Dates: start: 20120705, end: 20120705
  2. EVISTA (RALOXIFENE HYDROCHLORIDE) (RALOXIFENE HYDORCHLORIDE) [Concomitant]
  3. CRESTOR (ROXUVASTATIN CALCIUM) (ROSUVASTATIN CALCIUM) [Concomitant]
  4. NEXIUM (ESOMEPRAZOLE) (ESOMEPRAZOLE) [Concomitant]
  5. CALCIUM (CALCIUM) (CALCIUM) [Concomitant]
  6. MULTIVITAMIN (MULTIVITAMIN) (MULTIVITAMIN) [Concomitant]
  7. ASPIRIN (ACETYLSALICYLIC ACID) (ACETYLSALICYLIC ACID) [Concomitant]

REACTIONS (4)
  - Nausea [None]
  - Diarrhoea [None]
  - Abdominal pain upper [None]
  - Off label use [None]
